FAERS Safety Report 17527105 (Version 8)
Quarter: 2021Q1

REPORT INFORMATION
  Report Type: Spontaneous
  Country: US (occurrence: US)
  Receive Date: 20200311
  Receipt Date: 20210326
  Transmission Date: 20210419
  Serious: No
  Sender: FDA-Public Use
  Company Number: US-PFIZER INC-2020104938

PATIENT
  Age: 69 Year
  Sex: Female
  Weight: 68.04 kg

DRUGS (6)
  1. LYRICA [Suspect]
     Active Substance: PREGABALIN
     Indication: BACK PAIN
     Dosage: UNK
  2. LYRICA [Suspect]
     Active Substance: PREGABALIN
     Dosage: 50 MG (QHS BEFORE BED)
     Route: 048
  3. LYRICA [Suspect]
     Active Substance: PREGABALIN
     Indication: FIBROMYALGIA
     Dosage: 75 MG, DAILY (25MG IN THE MORNING AND 50 MG AT NIGHT)
  4. TRAMADOL. [Concomitant]
     Active Substance: TRAMADOL
     Indication: PAIN
     Dosage: 50 MG, 1X/DAY (CALLER STATES SHE TAKES AT MID AFTERNOON TO HELP COVER THE BREAKTHROUGH PAIN.)
     Route: 048
  5. LYRICA [Suspect]
     Active Substance: PREGABALIN
     Dosage: 75 MG, 1X/DAY
     Route: 048
     Dates: start: 201907
  6. LYRICA [Suspect]
     Active Substance: PREGABALIN
     Dosage: 25 MG (QAM)
     Route: 048

REACTIONS (6)
  - Gallbladder disorder [Unknown]
  - Breakthrough pain [Unknown]
  - Weight increased [Not Recovered/Not Resolved]
  - Acne cystic [Not Recovered/Not Resolved]
  - Skin erosion [Unknown]
  - Drug ineffective [Not Recovered/Not Resolved]

NARRATIVE: CASE EVENT DATE: 202001
